FAERS Safety Report 5629859-7 (Version None)
Quarter: 2008Q1

REPORT INFORMATION
  Report Type: 
  Country: None (occurrence: None)
  Receive Date: 20080214
  Receipt Date: 20080206
  Transmission Date: 20080703
  Serious: Yes (Other)
  Sender: FDA-Public Use
  Company Number: 2008-00187

PATIENT
  Sex: 0

DRUGS (3)
  1. VELCADE [Suspect]
     Indication: MULTIPLE MYELOMA
     Dosage: 1.30 MG/M2
  2. DEXAMETHASONE TAB [Suspect]
     Indication: MULTIPLE MYELOMA
     Dosage: 40.00 MG
  3. MELPHALAN      (MELPHALAN) [Suspect]
     Indication: MULTIPLE MYELOMA

REACTIONS (2)
  - HEPATOTOXICITY [None]
  - SKIN TOXICITY [None]
